FAERS Safety Report 14623827 (Version 1)
Quarter: 2018Q1

REPORT INFORMATION
  Report Type: Spontaneous
  Country: US (occurrence: US)
  Receive Date: 20180309
  Receipt Date: 20180309
  Transmission Date: 20180509
  Serious: Yes (Hospitalization)
  Sender: FDA-Public Use
  Company Number: None

PATIENT
  Age: 12 Year
  Sex: Female
  Weight: 50.7 kg

DRUGS (6)
  1. METHOTREXATE. [Suspect]
     Active Substance: METHOTREXATE
     Dates: end: 20180302
  2. CYTARABINE. [Suspect]
     Active Substance: CYTARABINE
     Dates: end: 20180215
  3. PREDNISONE. [Suspect]
     Active Substance: PREDNISONE
     Dates: end: 20180219
  4. MERCAPTOPURINE. [Suspect]
     Active Substance: MERCAPTOPURINE
     Dates: end: 20180305
  5. HYDROCORTISONE. [Suspect]
     Active Substance: HYDROCORTISONE
     Dates: end: 20180215
  6. VINCRISTINE SULFATE. [Suspect]
     Active Substance: VINCRISTINE SULFATE
     Dates: end: 20180215

REACTIONS (6)
  - Platelet count decreased [None]
  - Gamma-glutamyltransferase increased [None]
  - Ocular icterus [None]
  - Epistaxis [None]
  - Coagulopathy [None]
  - Alanine aminotransferase increased [None]

NARRATIVE: CASE EVENT DATE: 20180306
